FAERS Safety Report 11418426 (Version 1)
Quarter: 2015Q3

REPORT INFORMATION
  Report Type: Spontaneous
  Country: US (occurrence: US)
  Receive Date: 20150826
  Receipt Date: 20150826
  Transmission Date: 20151125
  Serious: No
  Sender: FDA-Public Use
  Company Number: US-NOVEN PHARMACEUTICALS, INC.-US2015000261

PATIENT
  Sex: Female

DRUGS (5)
  1. VIVELLE-DOT [Concomitant]
     Active Substance: ESTRADIOL
     Indication: MENOPAUSAL SYMPTOMS
  2. MINIVELLE [Suspect]
     Active Substance: ESTRADIOL
     Dosage: 0.1 MG, 2/WK
     Route: 062
     Dates: start: 20150506
  3. MINIVELLE [Suspect]
     Active Substance: ESTRADIOL
     Indication: MENOPAUSAL SYMPTOMS
     Dosage: 0.1 MG, 2/WK
     Route: 062
     Dates: start: 2013
  4. TESTOSTERONE. [Concomitant]
     Active Substance: TESTOSTERONE
  5. NORETHINDRONE. [Concomitant]
     Active Substance: NORETHINDRONE
     Route: 048

REACTIONS (5)
  - Drug dose omission [Recovered/Resolved]
  - Drug ineffective [Recovered/Resolved]
  - Drug prescribing error [Not Recovered/Not Resolved]
  - Hot flush [Recovered/Resolved]
  - Anxiety [Not Recovered/Not Resolved]

NARRATIVE: CASE EVENT DATE: 2013
